FAERS Safety Report 5011160-6 (Version None)
Quarter: 2006Q2

REPORT INFORMATION
  Report Type: 
  Country: None (occurrence: None)
  Receive Date: 20060523
  Receipt Date: 20060509
  Transmission Date: 20061013
  Serious: Yes (Hospitalization)
  Sender: FDA-Public Use
  Company Number: 2006RR-02233

PATIENT
  Age: 54 Year
  Sex: Female

DRUGS (1)
  1. RANITIDINE [Suspect]
     Indication: OESOPHAGITIS
     Dosage: 300 MG, QD, ORAL
     Route: 048
     Dates: start: 20060409, end: 20060412

REACTIONS (1)
  - HYPERSENSITIVITY [None]
